FAERS Safety Report 11698461 (Version 1)
Quarter: 2015Q4

REPORT INFORMATION
  Report Type: Spontaneous
  Country: FR (occurrence: FR)
  Receive Date: 20151104
  Receipt Date: 20151104
  Transmission Date: 20160304
  Serious: Yes (Hospitalization)
  Sender: FDA-Public Use
  Company Number: FR-JNJFOC-20151101190

PATIENT
  Age: 22 Year
  Sex: Female

DRUGS (1)
  1. EPITOMAX [Suspect]
     Active Substance: TOPIRAMATE
     Indication: MIGRAINE
     Dosage: IN THE MORNING AND EVENING
     Route: 048
     Dates: start: 201405, end: 201407

REACTIONS (1)
  - Angioedema [Recovered/Resolved]

NARRATIVE: CASE EVENT DATE: 201406
